FAERS Safety Report 6298729-6 (Version None)
Quarter: 2009Q3

REPORT INFORMATION
  Report Type: 
  Country: None (occurrence: None)
  Receive Date: 20090806
  Receipt Date: 20070917
  Transmission Date: 20100115
  Serious: Yes (Disabling, Other)
  Sender: FDA-Public Use
  Company Number: US-ASTRAZENECA-2006UW27487

PATIENT
  Age: 22005 Day
  Sex: Female
  Weight: 57.4 kg

DRUGS (10)
  1. SEROQUEL [Suspect]
     Route: 048
     Dates: start: 20040908
  2. AMBIEN [Concomitant]
     Dates: start: 20050121
  3. ACTONEL [Concomitant]
     Dates: start: 20050117
  4. METHADONE HCL [Concomitant]
     Dates: start: 20041209
  5. LEXAPRO [Concomitant]
     Dates: start: 20041114
  6. CLONAZEPAM [Concomitant]
     Dates: start: 20040908
  7. ATENOLOL [Concomitant]
     Dates: start: 20040807
  8. PROPOXYPHENE HCL CAP [Concomitant]
     Dosage: STRENGTH - 100 - 650 MG
     Dates: start: 20041005
  9. PROTONIX [Concomitant]
     Dates: start: 20040912
  10. ZYDONE [Concomitant]
     Dosage: STRENGTH - 10 - 400 MG
     Dates: start: 20040908

REACTIONS (2)
  - DIABETES MELLITUS [None]
  - DIABETIC RETINOPATHY [None]
